FAERS Safety Report 5891790-X (Version None)
Quarter: 2008Q3

REPORT INFORMATION
  Report Type: 
  Country: None (occurrence: None)
  Receive Date: 20080922
  Receipt Date: 20080910
  Transmission Date: 20090109
  Serious: Yes (Hospitalization)
  Sender: FDA-Public Use
  Company Number: US-ELI_LILLY_AND_COMPANY-US200803003596

PATIENT
  Sex: Female
  Weight: 147.85 kg

DRUGS (1)
  1. ZYPREXA [Suspect]
     Dates: start: 20030109

REACTIONS (4)
  - CARDIAC FAILURE CONGESTIVE [None]
  - DIABETES MELLITUS [None]
  - RENAL DISORDER [None]
  - RENAL FAILURE [None]
